FAERS Safety Report 5713002-X (Version None)
Quarter: 2008Q2

REPORT INFORMATION
  Report Type: 
  Country: None (occurrence: None)
  Receive Date: 20080422
  Receipt Date: 20080414
  Transmission Date: 20081010
  Serious: Yes (Other)
  Sender: FDA-Public Use
  Company Number: US-BRISTOL-MYERS SQUIBB COMPANY-14157424

PATIENT
  Age: 85 Year
  Sex: Female

DRUGS (6)
  1. SINEMET [Suspect]
     Indication: TREMOR
  2. ALPRAZOLAM [Suspect]
     Indication: NERVOUSNESS
  3. ALPRAZOLAM [Suspect]
     Indication: INSOMNIA
  4. AMIODARONE HCL [Suspect]
     Indication: ATRIAL FIBRILLATION
  5. ENTACAPONE [Suspect]
     Indication: TREMOR
  6. CYPROHEPTADINE HCL [Suspect]
     Indication: WEIGHT DECREASED

REACTIONS (1)
  - PARKINSONISM [None]
